FAERS Safety Report 18360892 (Version 2)
Quarter: 2020Q4

REPORT INFORMATION
  Report Type: Report from Study
  Country: None (occurrence: FR)
  Receive Date: 20201008
  Receipt Date: 20201228
  Transmission Date: 20210114
  Serious: Yes (Hospitalization, Other)
  Sender: FDA-Public Use
  Company Number: FR-ABBVIE-20K-056-3595209-00

PATIENT
  Sex: Female

DRUGS (2)
  1. DUODOPA [Suspect]
     Active Substance: CARBIDOPA\LEVODOPA
     Indication: PARKINSON^S DISEASE
     Dosage: STARTED THE TREATMENT ON THE WEEK OF 15 MAR 2019
     Route: 050
     Dates: start: 201903
  2. DUODOPA [Suspect]
     Active Substance: CARBIDOPA\LEVODOPA

REACTIONS (5)
  - Tremor [Not Recovered/Not Resolved]
  - Impaired healing [Not Recovered/Not Resolved]
  - Shoulder operation [Unknown]
  - Osteonecrosis [Unknown]
  - Device issue [Unknown]

NARRATIVE: CASE EVENT DATE: 202010
